FAERS Safety Report 12928990 (Version 7)
Quarter: 2017Q2

REPORT INFORMATION
  Report Type: Spontaneous
  Country: US (occurrence: US)
  Receive Date: 20161110
  Receipt Date: 20170413
  Transmission Date: 20170830
  Serious: Yes (Congenital Anomaly, Other)
  Sender: FDA-Public Use
  Company Number: PHEH2016US029405

PATIENT
  Sex: Female

DRUGS (5)
  1. ZOFRAN ODT [Suspect]
     Active Substance: ONDANSETRON HYDROCHLORIDE
     Indication: FOETAL EXPOSURE DURING PREGNANCY
     Dosage: MOTHER^S DOSE: 8 MG, PRN
     Route: 064
  2. ZOFRAN [Suspect]
     Active Substance: ONDANSETRON HYDROCHLORIDE
     Indication: FOETAL EXPOSURE DURING PREGNANCY
     Dosage: MOTHER DOSE: 04 MG, UNK
     Route: 064
  3. ONDANSETRON [Suspect]
     Active Substance: ONDANSETRON
     Indication: FOETAL EXPOSURE DURING PREGNANCY
     Dosage: MOTHER DOSE: 08 MG, UNK
     Route: 064
  4. ZOFRAN [Suspect]
     Active Substance: ONDANSETRON HYDROCHLORIDE
     Indication: FOETAL EXPOSURE DURING PREGNANCY
     Dosage: MOTHER DOSE: 01 DF, Q8H
     Route: 064
  5. ONDANSETRON. [Suspect]
     Active Substance: ONDANSETRON
     Indication: FOETAL EXPOSURE DURING PREGNANCY
     Dosage: MOTHER DOSE: 04 MG, PRN
     Route: 064

REACTIONS (35)
  - Atrial septal defect [Unknown]
  - Cardiomegaly [Unknown]
  - Jaundice neonatal [Unknown]
  - Pulmonary valve stenosis congenital [Unknown]
  - Right aortic arch [Unknown]
  - Univentricular heart [Unknown]
  - Transposition of the great vessels [Unknown]
  - Hyperbilirubinaemia neonatal [Unknown]
  - Pyelocaliectasis [Unknown]
  - Right ventricle outflow tract obstruction [Unknown]
  - Hypoplastic right heart syndrome [Unknown]
  - Anaemia neonatal [Unknown]
  - Goitre [Unknown]
  - Injury [Unknown]
  - Cardiac murmur [Unknown]
  - Ventricular hypoplasia [Unknown]
  - Ventricular septal defect [Unknown]
  - Persistent left superior vena cava [Unknown]
  - Congenital great vessel anomaly [Unknown]
  - Pleural effusion [Unknown]
  - Neonatal hyponatraemia [Unknown]
  - Ear infection [Unknown]
  - Decreased appetite [Unknown]
  - Pulmonary hypoplasia [Unknown]
  - Heart disease congenital [Unknown]
  - Hyperdynamic left ventricle [Unknown]
  - Tricuspid valve incompetence [Unknown]
  - Lung hyperinflation [Unknown]
  - Developmental delay [Unknown]
  - Double outlet right ventricle [Unknown]
  - Angiopathy [Unknown]
  - Foetal exposure during pregnancy [Unknown]
  - Pulmonary oedema [Unknown]
  - Acute respiratory distress syndrome [Unknown]
  - Fever neonatal [Unknown]
